FAERS Safety Report 13052087 (Version 2)
Quarter: 2017Q1

REPORT INFORMATION
  Report Type: Spontaneous
  Country: FR (occurrence: FR)
  Receive Date: 20161221
  Receipt Date: 20170106
  Transmission Date: 20170428
  Serious: Yes (Hospitalization)
  Sender: FDA-Public Use
  Company Number: FR-TEVA-721578ROM

PATIENT
  Age: 8 Year
  Sex: Female

DRUGS (10)
  1. DOXORUBICINE TEVA [Suspect]
     Active Substance: DOXORUBICIN
     Indication: UTERINE NEOPLASM
     Dates: start: 20161104, end: 20161105
  2. DOXORUBICINE TEVA [Suspect]
     Active Substance: DOXORUBICIN
     Route: 042
     Dates: start: 20161124, end: 20161125
  3. VINCRISTINE HOSPIRA 2 MG/2 ML [Suspect]
     Active Substance: VINCRISTINE
     Indication: UTERINE NEOPLASM
     Dosage: 1.6 MILLIGRAM DAILY; FIRST COURSE OF CHEMOTHERAPY, VAC PROTOCOL
     Dates: start: 20161014, end: 20161014
  4. VINCRISTINE HOSPIRA 2 MG/2 ML [Suspect]
     Active Substance: VINCRISTINE
     Dates: start: 20161104, end: 20161104
  5. ENDOXAN [Suspect]
     Active Substance: CYCLOPHOSPHAMIDE
     Route: 042
     Dates: start: 20161124, end: 20161124
  6. DECAPEPTYL [Concomitant]
     Active Substance: TRIPTORELIN
     Indication: PRECOCIOUS PUBERTY
     Dosage: ONE INJECTION PER MONTH
     Dates: start: 2016
  7. VINCRISTINE HOSPIRA 2 MG/2 ML [Suspect]
     Active Substance: VINCRISTINE
     Route: 042
     Dates: start: 20161124, end: 20161124
  8. COSMEGEN [Concomitant]
     Active Substance: DACTINOMYCIN
     Indication: UTERINE NEOPLASM
     Dosage: 810 MILLIGRAM DAILY; FIRST COURSE OF CHEMOTHERAPY VAC PROTOCOL
     Dates: start: 20161014, end: 20161015
  9. ENDOXAN [Suspect]
     Active Substance: CYCLOPHOSPHAMIDE
     Dates: start: 20161104, end: 20161104
  10. ENDOXAN [Suspect]
     Active Substance: CYCLOPHOSPHAMIDE
     Indication: UTERINE NEOPLASM
     Dosage: 810 MILLIGRAM DAILY; FIRST COURSE OF CHEMOTHERAPY VAC PROTOCOL. DOSE REDUCED BY 50 PERCENT
     Dates: start: 20161014, end: 20161014

REACTIONS (1)
  - Venoocclusive disease [Recovered/Resolved]

NARRATIVE: CASE EVENT DATE: 20161203
